FAERS Safety Report 15641250 (Version 7)
Quarter: 2022Q2

REPORT INFORMATION
  Report Type: Spontaneous
  Country: PT (occurrence: PT)
  Receive Date: 20181120
  Receipt Date: 20220505
  Transmission Date: 20220720
  Serious: Yes (Death, Hospitalization, Other)
  Sender: FDA-Public Use
  Company Number: PHHY2018PT155539

PATIENT
  Age: 58 Year
  Sex: Male

DRUGS (2)
  1. AMOXICILLIN\CLAVULANATE POTASSIUM [Suspect]
     Active Substance: AMOXICILLIN\CLAVULANATE POTASSIUM
     Indication: Tonsillitis
     Dosage: UNK
     Route: 048
  2. PREDNISOLONE [Suspect]
     Active Substance: PREDNISOLONE
     Indication: Product used for unknown indication
     Dosage: 40 MG, QD
     Route: 065

REACTIONS (11)
  - Cholestasis [Fatal]
  - Pruritus [Fatal]
  - Asthenia [Fatal]
  - Hyperhidrosis [Fatal]
  - Rash pruritic [Fatal]
  - Sepsis [Fatal]
  - Colitis [Fatal]
  - Jaundice [Fatal]
  - Drug-induced liver injury [Recovering/Resolving]
  - Cholestatic liver injury [Unknown]
  - Hepatic lesion [Unknown]
